FAERS Safety Report 8000954-0 (Version None)
Quarter: 2011Q4

REPORT INFORMATION
  Report Type: 
  Country: None (occurrence: None)
  Receive Date: 20111219
  Receipt Date: 20111205
  Transmission Date: 20120403
  Serious: Yes (Hospitalization, Other)
  Sender: FDA-Public Use
  Company Number: 2011MA017329

PATIENT
  Age: 59 Year
  Sex: Male

DRUGS (4)
  1. RIFAMPIN [Suspect]
     Indication: ASPERGILLOSIS
  2. AMBISOME [Suspect]
     Indication: ASPERGILLOSIS
  3. ISONIAZID [Suspect]
     Indication: ASPERGILLOSIS
  4. ETHAMBUTOL HYDROCHLORIDE [Suspect]
     Indication: ASPERGILLOSIS

REACTIONS (7)
  - HYPOTENSION [None]
  - DYSPNOEA [None]
  - DRUG INTERACTION [None]
  - HYPOXIA [None]
  - TACHYCARDIA [None]
  - WHEEZING [None]
  - URTICARIA [None]
